FAERS Safety Report 7183878-0 (Version None)
Quarter: 2010Q4

REPORT INFORMATION
  Report Type: 
  Country: None (occurrence: None)
  Receive Date: 20101222
  Receipt Date: 20101216
  Transmission Date: 20110411
  Serious: Yes (Other)
  Sender: FDA-Public Use
  Company Number: DE-ROCHE-739846

PATIENT
  Age: 88 Year
  Sex: Female
  Weight: 51 kg

DRUGS (2)
  1. BONIVA [Suspect]
     Indication: OSTEOPOROSIS
     Dosage: 2 DOSES: 14 APR 2010 AND JUL 2010
     Route: 042
     Dates: start: 20100414, end: 20101001
  2. NOVALGIN [Concomitant]
     Indication: PAIN
     Route: 048

REACTIONS (1)
  - LIVER FUNCTION TEST ABNORMAL [None]
